FAERS Safety Report 7151690-4 (Version None)
Quarter: 2010Q4

REPORT INFORMATION
  Report Type: 
  Country: None (occurrence: None)
  Receive Date: 20101210
  Receipt Date: 20101126
  Transmission Date: 20110411
  Serious: Yes (Hospitalization)
  Sender: FDA-Public Use
  Company Number: DE-GENENTECH-310470

PATIENT
  Age: 82 Year
  Sex: Male

DRUGS (2)
  1. MABTHERA [Suspect]
     Indication: LYMPHOPLASMACYTOID LYMPHOMA/IMMUNOCYTOMA
     Dosage: UNK
     Route: 042
     Dates: start: 20100928, end: 20101026
  2. MABTHERA [Suspect]
     Dosage: UNK
     Route: 042
     Dates: start: 20090101, end: 20090101

REACTIONS (3)
  - AGITATION [None]
  - PARANOIA [None]
  - PSYCHOTIC BEHAVIOUR [None]
